FAERS Safety Report 26035499 (Version 1)
Quarter: 2025Q4

REPORT INFORMATION
  Report Type: Spontaneous
  Country: EU (occurrence: EU)
  Receive Date: 20251112
  Receipt Date: 20251112
  Transmission Date: 20260118
  Serious: Yes (Death, Other)
  Sender: SEPTODONT
  Company Number: None

PATIENT
  Weight: 62 kg

DRUGS (5)
  1. ARTICAINE\EPINEPHRINE [Suspect]
     Active Substance: ARTICAINE\EPINEPHRINE
     Indication: Local anaesthesia
     Dosage: 1ML
     Route: 053
     Dates: start: 20250918, end: 20250918
  2. TIAPROFENIC ACID [Suspect]
     Active Substance: TIAPROFENIC ACID
     Indication: Nasopharyngitis
     Route: 048
     Dates: start: 20250917, end: 20250918
  3. ACETAMINOPHEN [Suspect]
     Active Substance: ACETAMINOPHEN
     Indication: Nasopharyngitis
     Route: 065
     Dates: start: 20250917, end: 20250918
  4. AMOXICILLIN [Suspect]
     Active Substance: AMOXICILLIN
     Indication: Upper respiratory tract infection
     Route: 048
     Dates: start: 20250917, end: 20250917
  5. ERYTHRITOL [Concomitant]
     Active Substance: ERYTHRITOL
     Indication: Dental care
     Dates: start: 20250918, end: 20250918

REACTIONS (7)
  - Cardio-respiratory arrest [Fatal]
  - Loss of consciousness [Fatal]
  - Respiratory distress [Fatal]
  - Eye disorder [Fatal]
  - Skin plaque [Fatal]
  - Coma [Fatal]
  - Hypokalaemia [Fatal]

NARRATIVE: CASE EVENT DATE: 20250918
